FAERS Safety Report 6590810-7 (Version None)
Quarter: 2010Q1

REPORT INFORMATION
  Report Type: 
  Country: None (occurrence: None)
  Receive Date: 20100219
  Receipt Date: 20100209
  Transmission Date: 20100710
  Serious: Yes (Other)
  Sender: FDA-Public Use
  Company Number: JP-PFIZER INC-2010019542

PATIENT
  Age: 58 Year
  Sex: Female
  Weight: 50.8 kg

DRUGS (5)
  1. RIFABUTIN [Suspect]
     Indication: MYCOBACTERIUM AVIUM COMPLEX INFECTION
     Dosage: 150 MG, 1X/DAY
     Route: 048
     Dates: start: 20090119, end: 20090508
  2. CLARITH [Concomitant]
     Route: 048
  3. MUCODYNE [Concomitant]
     Route: 048
  4. EBUTOL [Concomitant]
     Route: 048
  5. METHYCOBAL [Concomitant]

REACTIONS (1)
  - DECREASED APPETITE [None]
